FAERS Safety Report 9109402 (Version 2)
Quarter: 2013Q1

REPORT INFORMATION
  Report Type: Report from Study
  Country: ES (occurrence: ES)
  Receive Date: 20130222
  Receipt Date: 20130326
  Transmission Date: 20140127
  Serious: Yes (Other)
  Sender: FDA-Public Use
  Company Number: ES-JNJFOC-20130208487

PATIENT
  Age: 43 Year
  Sex: Male

DRUGS (4)
  1. INTELENCE [Suspect]
     Indication: HIV INFECTION
     Route: 048
     Dates: start: 20101118
  2. FTC [Concomitant]
     Indication: HIV INFECTION
  3. TDF [Concomitant]
     Indication: HIV INFECTION
  4. LAMIVUDINE ABACAVIR SULFATE [Concomitant]
     Indication: HIV INFECTION
     Route: 065
     Dates: start: 20110303

REACTIONS (1)
  - Toxicity to various agents [Unknown]
